FAERS Safety Report 6437678-7 (Version None)
Quarter: 2009Q4

REPORT INFORMATION
  Report Type: 
  Country: None (occurrence: None)
  Receive Date: 20091112
  Receipt Date: 20091104
  Transmission Date: 20100525
  Serious: Yes (Death, Life-Threatening, Hospitalization)
  Sender: FDA-Public Use
  Company Number: B0601677A

PATIENT
  Age: 63 Year
  Sex: Female
  Weight: 83 kg

DRUGS (9)
  1. ARIXTRA [Suspect]
     Indication: ATRIAL FIBRILLATION
     Route: 058
     Dates: start: 20091009, end: 20091010
  2. PREVISCAN [Suspect]
     Indication: ATRIAL FIBRILLATION
     Dosage: 20MG UNKNOWN
     Route: 048
     Dates: end: 20091007
  3. CORDARONE [Concomitant]
     Indication: DRUG USE FOR UNKNOWN INDICATION
     Route: 065
  4. ALDACTONE [Concomitant]
     Indication: DRUG USE FOR UNKNOWN INDICATION
     Dosage: 75MG UNKNOWN
     Route: 048
  5. EUPRESSYL [Concomitant]
     Indication: DRUG USE FOR UNKNOWN INDICATION
     Dosage: 30MG UNKNOWN
     Route: 048
  6. TRACLEER [Concomitant]
     Indication: DRUG USE FOR UNKNOWN INDICATION
     Dosage: 125MG UNKNOWN
     Route: 048
  7. LASILIX [Concomitant]
     Indication: DRUG USE FOR UNKNOWN INDICATION
     Dosage: 40MG UNKNOWN
     Route: 048
  8. REVATIO [Concomitant]
     Indication: DRUG USE FOR UNKNOWN INDICATION
     Route: 065
  9. DIFFU K [Concomitant]
     Indication: DRUG USE FOR UNKNOWN INDICATION
     Route: 048

REACTIONS (13)
  - ALANINE AMINOTRANSFERASE INCREASED [None]
  - ASPARTATE AMINOTRANSFERASE INCREASED [None]
  - DYSPNOEA [None]
  - GENERAL PHYSICAL HEALTH DETERIORATION [None]
  - HAEMATOMA [None]
  - HYPOTENSION [None]
  - MULTI-ORGAN FAILURE [None]
  - OFF LABEL USE [None]
  - PERITONEAL HAEMORRHAGE [None]
  - RESPIRATORY DISTRESS [None]
  - SEPSIS [None]
  - SHOCK [None]
  - SHOCK HAEMORRHAGIC [None]
